FAERS Safety Report 7342093-8 (Version None)
Quarter: 2011Q1

REPORT INFORMATION
  Report Type: 
  Country: None (occurrence: None)
  Receive Date: 20110309
  Receipt Date: 20110228
  Transmission Date: 20110831
  Serious: Yes (Hospitalization)
  Sender: FDA-Public Use
  Company Number: DE-ASTRAZENECA-2011SE12176

PATIENT
  Age: 24 Year
  Sex: Female

DRUGS (26)
  1. SEROQUEL XR [Suspect]
     Route: 048
     Dates: start: 20100917, end: 20100917
  2. CIPRAMIL [Concomitant]
     Route: 048
     Dates: start: 20100310, end: 20100414
  3. CIPRAMIL [Concomitant]
     Route: 048
     Dates: start: 20100415, end: 20100814
  4. SEROQUEL XR [Suspect]
     Route: 048
     Dates: start: 20090414, end: 20100701
  5. SEROQUEL XR [Suspect]
     Route: 048
     Dates: start: 20100928, end: 20110106
  6. LEVOTHYROXINE SODIUM [Concomitant]
     Route: 048
  7. SEROQUEL XR [Suspect]
     Route: 048
     Dates: start: 20100927, end: 20100927
  8. SEROQUEL XR [Suspect]
     Route: 048
     Dates: start: 20110125
  9. TAVOR [Concomitant]
     Route: 048
     Dates: start: 20100921, end: 20100922
  10. FLUANXOL [Concomitant]
     Route: 048
     Dates: start: 20110110
  11. SEROQUEL XR [Suspect]
     Route: 048
     Dates: start: 20090323, end: 20090413
  12. SEROQUEL XR [Suspect]
     Route: 048
     Dates: start: 20100815
  13. RISPERDAL [Suspect]
     Route: 048
     Dates: start: 20101119
  14. TAVOR [Concomitant]
     Route: 048
     Dates: start: 20100918, end: 20100920
  15. SEROQUEL XR [Suspect]
     Route: 048
     Dates: start: 20100919, end: 20100922
  16. TAVOR [Concomitant]
     Route: 048
     Dates: start: 20100917, end: 20100917
  17. SEROQUEL XR [Suspect]
     Route: 048
     Dates: start: 20090320, end: 20090322
  18. TAVOR [Concomitant]
     Route: 048
     Dates: start: 20100923, end: 20101003
  19. CIPRAMIL [Concomitant]
     Route: 048
     Dates: start: 20100815
  20. SEROQUEL XR [Suspect]
     Route: 048
     Dates: start: 20100923, end: 20100926
  21. TAVOR [Concomitant]
     Dosage: 2.5-2 MG
     Route: 048
     Dates: start: 20101004, end: 20101017
  22. TAVOR [Concomitant]
     Route: 048
     Dates: start: 20101103, end: 20101108
  23. SEROQUEL XR [Suspect]
     Route: 048
     Dates: start: 20100918, end: 20100918
  24. SEROQUEL XR [Suspect]
     Route: 048
     Dates: start: 20110107, end: 20110124
  25. RISPERDAL [Suspect]
     Route: 048
     Dates: start: 20101105, end: 20101118
  26. TAVOR [Concomitant]
     Dosage: 1.5-1 MG DAILY
     Route: 048
     Dates: start: 20101018, end: 20101102

REACTIONS (3)
  - GALACTORRHOEA [None]
  - AMENORRHOEA [None]
  - BLOOD PROLACTIN INCREASED [None]
